FAERS Safety Report 16346573 (Version 2)
Quarter: 2020Q2

REPORT INFORMATION
  Report Type: Spontaneous
  Country: DK (occurrence: DK)
  Receive Date: 20190523
  Receipt Date: 20200516
  Transmission Date: 20200713
  Serious: Yes (Other)
  Sender: FDA-Public Use
  Company Number: DK-SUN PHARMACEUTICAL INDUSTRIES LTD-2019R1-208732

PATIENT
  Sex: Female

DRUGS (4)
  1. AMITRIPTYLINE [Interacting]
     Active Substance: AMITRIPTYLINE
     Dosage: 200 MILLIGRAM, DAILY
     Route: 065
  2. CYPROTERONE/ETHINYLESTRADIOL [Interacting]
     Active Substance: CYPROTERONE ACETATE\ETHINYL ESTRADIOL
     Indication: HORMONAL CONTRACEPTION
     Dosage: UNK
     Route: 048
  3. AMITRIPTYLINE [Suspect]
     Active Substance: AMITRIPTYLINE
     Indication: DEPRESSION
     Dosage: 175 MILLIGRAM, DAILY
     Route: 065
  4. AMITRIPTYLINE [Interacting]
     Active Substance: AMITRIPTYLINE
     Dosage: 150 MILLIGRAM, DAILY
     Route: 065

REACTIONS (2)
  - Condition aggravated [Recovering/Resolving]
  - Drug interaction [Unknown]
